FAERS Safety Report 6628753-2 (Version None)
Quarter: 2010Q1

REPORT INFORMATION
  Report Type: 
  Country: None (occurrence: None)
  Receive Date: 20100311
  Receipt Date: 20100302
  Transmission Date: 20100710
  Serious: Yes (Other)
  Sender: FDA-Public Use
  Company Number: CHPA2010US04708

PATIENT
  Age: 86 Year
  Sex: Female
  Weight: 63.492 kg

DRUGS (4)
  1. BENEFIBER W/ WHEAT DEXTRIN (NCH) [Suspect]
     Indication: BOWEL MOVEMENT IRREGULARITY
     Dosage: 2 TSP, TID
     Route: 048
     Dates: start: 20070101
  2. METOPROLOL [Concomitant]
     Indication: CARDIAC DISORDER
  3. NEXIUM [Concomitant]
     Indication: HIATUS HERNIA
  4. PLAVIX [Concomitant]
     Indication: ANTICOAGULANT THERAPY

REACTIONS (3)
  - BLOOD PRESSURE DECREASED [None]
  - OFF LABEL USE [None]
  - SYNCOPE [None]
